FAERS Safety Report 24343165 (Version 1)
Quarter: 2024Q3

REPORT INFORMATION
  Report Type: Spontaneous
  Country: IT (occurrence: IT)
  Receive Date: 20240920
  Receipt Date: 20240920
  Transmission Date: 20241016
  Serious: Yes (Other)
  Sender: BRACCO
  Company Number: None

PATIENT
  Age: 60 Year
  Sex: Male

DRUGS (3)
  1. EPIRUBICIN HYDROCHLORIDE [Suspect]
     Active Substance: EPIRUBICIN HYDROCHLORIDE
     Indication: Transcatheter arterial chemoembolisation
     Dosage: 40 MG, CYCLIC IN 48 DAYS (EPIRUBICIN- LIPIODOL MIXTURE, INJECTED/ TRANSCATHETER CHEMOEMBOLIZATION)
     Route: 013
  2. IOPAMIDOL [Suspect]
     Active Substance: IOPAMIDOL
     Indication: Hepatic angiogram
     Dosage: UNK (2-4 ML IOPAMIDOL 300 MGI)
     Route: 013
  3. LIPIODOL [Suspect]
     Active Substance: ETHIODIZED OIL
     Indication: X-ray
     Dosage: UNK (EPIRUBICIN- LIPIODOL MIXTURE, 5-10 ML LIPIODOL ULTRAFLUID/TACE)
     Route: 013

REACTIONS (1)
  - Hepatic artery stenosis [Unknown]
